FAERS Safety Report 5082913-3 (Version None)
Quarter: 2006Q3

REPORT INFORMATION
  Report Type: 
  Country: None (occurrence: None)
  Receive Date: 20060720
  Receipt Date: 20060426
  Transmission Date: 20061208
  Serious: Yes (Hospitalization)
  Sender: FDA-Public Use
  Company Number: 2006057917

PATIENT
  Age: 77 Year
  Sex: Female
  Weight: 54.4316 kg

DRUGS (1)
  1. CELEBREX [Suspect]
     Indication: BACK DISORDER
     Dosage: 200 MG (200 MG,1 IN 1 D)
     Dates: start: 19990514

REACTIONS (2)
  - CEREBROVASCULAR ACCIDENT [None]
  - PANIC REACTION [None]
